FAERS Safety Report 5229467-6 (Version None)
Quarter: 2007Q1

REPORT INFORMATION
  Report Type: 
  Country: None (occurrence: None)
  Receive Date: 20070131
  Receipt Date: 20070117
  Transmission Date: 20070707
  Serious: Yes (Hospitalization, Other)
  Sender: FDA-Public Use
  Company Number: 2006PV021088

PATIENT
  Age: 77 Year
  Sex: Male
  Weight: 102.9665 kg

DRUGS (12)
  1. BYETTA [Suspect]
     Indication: DIABETES MELLITUS NON-INSULIN-DEPENDENT
     Dosage: 5 + 10 MCG;BID; SC - SEE IMAGE
     Route: 058
     Dates: start: 20060807, end: 20060904
  2. BYETTA [Suspect]
     Indication: DIABETES MELLITUS NON-INSULIN-DEPENDENT
     Dosage: 5 + 10 MCG;BID; SC - SEE IMAGE
     Route: 058
     Dates: start: 20060905, end: 20060909
  3. BYETTA [Suspect]
     Indication: DIABETES MELLITUS NON-INSULIN-DEPENDENT
     Dosage: 5 + 10 MCG;BID; SC - SEE IMAGE
     Route: 058
     Dates: start: 20060912
  4. GLIMEPIRIDE [Concomitant]
  5. LANTUS [Concomitant]
  6. PROTONIX [Concomitant]
  7. BENZONATATE [Concomitant]
  8. METOCLOPRAMIDE [Concomitant]
  9. TRIAMTERENE [Concomitant]
  10. PRIMIDONE [Concomitant]
  11. MULTIPLE VITAMINS FOR SENIORS [Concomitant]
  12. ANDROGEL [Concomitant]

REACTIONS (12)
  - ALANINE AMINOTRANSFERASE INCREASED [None]
  - ASPARTATE AMINOTRANSFERASE INCREASED [None]
  - BILE DUCT STONE [None]
  - BLOOD BILIRUBIN INCREASED [None]
  - BRONCHITIS [None]
  - BRONCHOPNEUMONIA [None]
  - FEELING ABNORMAL [None]
  - INCOHERENT [None]
  - NAUSEA [None]
  - URINARY INCONTINENCE [None]
  - VOMITING [None]
  - WEIGHT DECREASED [None]
